FAERS Safety Report 25569117 (Version 2)
Quarter: 2025Q3

REPORT INFORMATION
  Report Type: Other
  Country: US (occurrence: US)
  Receive Date: 20250716
  Receipt Date: 20250725
  Transmission Date: 20251020
  Serious: Yes (Other)
  Sender: Karo Pharma
  Company Number: US-Karo Pharma-2180628

PATIENT
  Age: 39 Year
  Sex: Female

DRUGS (1)
  1. LAMISIL [Suspect]
     Active Substance: TERBINAFINE HYDROCHLORIDE
     Indication: Body tinea

REACTIONS (9)
  - Thrombotic thrombocytopenic purpura [Recovered/Resolved]
  - Purpura [Recovered/Resolved]
  - Nausea [Recovered/Resolved]
  - Petechiae [Recovered/Resolved]
  - Syncope [Recovered/Resolved]
  - Cerebral haemorrhage [Recovered/Resolved]
  - Pallor [Recovered/Resolved]
  - Haemolytic anaemia [Recovered/Resolved]
  - Vomiting [Recovered/Resolved]
